FAERS Safety Report 11528459 (Version 2)
Quarter: 2016Q3

REPORT INFORMATION
  Report Type: Spontaneous
  Country: US (occurrence: US)
  Receive Date: 20150921
  Receipt Date: 20160924
  Transmission Date: 20161109
  Serious: No
  Sender: FDA-Public Use
  Company Number: US-TEVA-589677USA

PATIENT
  Age: 58 Year
  Sex: Female
  Weight: 81.72 kg

DRUGS (5)
  1. MS CONTIN [Concomitant]
     Active Substance: MORPHINE SULFATE
     Dosage: 200 MILLIGRAM DAILY;
     Dates: start: 20150911
  2. KLONOPIN [Concomitant]
     Active Substance: CLONAZEPAM
     Dosage: HALF TABLET
     Dates: start: 20150824
  3. NEURONTIN [Concomitant]
     Active Substance: GABAPENTIN
     Dosage: 1600 MILLIGRAM DAILY;
     Dates: start: 20150220
  4. RELAFEN [Concomitant]
     Active Substance: NABUMETONE
     Dosage: 1000 MILLIGRAM DAILY;
     Dates: start: 20150824
  5. CLONAZEPAM. [Suspect]
     Active Substance: CLONAZEPAM
     Indication: COMPLEX REGIONAL PAIN SYNDROME
     Route: 065

REACTIONS (4)
  - False negative investigation result [Unknown]
  - Tremor [Recovered/Resolved]
  - Off label use [Unknown]
  - Therapeutic response unexpected [Unknown]

NARRATIVE: CASE EVENT DATE: 20150804
